FAERS Safety Report 5981470-4 (Version None)
Quarter: 2008Q4

REPORT INFORMATION
  Report Type: 
  Country: None (occurrence: None)
  Receive Date: 20081126
  Receipt Date: 20071203
  Transmission Date: 20090506
  Serious: Yes (Hospitalization, Other)
  Sender: FDA-Public Use
  Company Number: 2007BH009518

PATIENT
  Age: 70 Year
  Sex: Female
  Weight: 78.0187 kg

DRUGS (2)
  1. DIANEAL [Suspect]
     Indication: PERITONEAL DIALYSIS
     Dosage: IP
     Route: 033
     Dates: end: 20071106
  2. INSULIN [Concomitant]

REACTIONS (2)
  - CATHETER RELATED INFECTION [None]
  - PERITONITIS BACTERIAL [None]
